FAERS Safety Report 6095015-4 (Version None)
Quarter: 2009Q1

REPORT INFORMATION
  Report Type: 
  Country: None (occurrence: None)
  Receive Date: 20090227
  Receipt Date: 20020626
  Transmission Date: 20090719
  Serious: No
  Sender: FDA-Public Use
  Company Number: A0373149A

PATIENT
  Age: 7 Year
  Sex: Male

DRUGS (4)
  1. LAMICTAL [Suspect]
     Indication: BIPOLAR DISORDER
     Dosage: 25MG PER DAY
     Route: 048
     Dates: start: 20020604, end: 20020615
  2. FLONASE [Concomitant]
     Route: 045
  3. FLOVENT [Concomitant]
     Route: 055
  4. ALBUTEROL [Concomitant]

REACTIONS (5)
  - EYE IRRITATION [None]
  - PYREXIA [None]
  - RASH MACULO-PAPULAR [None]
  - STEVENS-JOHNSON SYNDROME [None]
  - VIRAL SKIN INFECTION [None]
